FAERS Safety Report 6723586-0 (Version None)
Quarter: 2010Q2

REPORT INFORMATION
  Report Type: 
  Country: None (occurrence: None)
  Receive Date: 20100513
  Receipt Date: 20100506
  Transmission Date: 20101027
  Serious: Yes (Other)
  Sender: FDA-Public Use
  Company Number: US-SANOFI-AVENTIS-2010SA026700

PATIENT
  Age: 65 Year
  Sex: Female

DRUGS (3)
  1. NASACORT AQ [Suspect]
     Route: 045
     Dates: start: 20100505, end: 20100506
  2. NASACORT AQ [Suspect]
     Route: 045
     Dates: start: 20100508
  3. ALL OTHER THERAPEUTIC PRODUCTS [Concomitant]

REACTIONS (11)
  - BLINDNESS [None]
  - CHEST DISCOMFORT [None]
  - CHEST PAIN [None]
  - DYSPHONIA [None]
  - DYSPNOEA [None]
  - HEADACHE [None]
  - INTRAOCULAR PRESSURE INCREASED [None]
  - LOSS OF CONSCIOUSNESS [None]
  - MENTAL IMPAIRMENT [None]
  - PALATAL OEDEMA [None]
  - PHARYNGITIS [None]
